APPROVED DRUG PRODUCT: N.E.E. 1/35 28
Active Ingredient: ETHINYL ESTRADIOL; NORETHINDRONE
Strength: 0.035MG;1MG
Dosage Form/Route: TABLET;ORAL-28
Application: A071542 | Product #001
Applicant: LPI HOLDINGS INC
Approved: Dec 14, 1987 | RLD: No | RS: No | Type: DISCN